FAERS Safety Report 5748071-4 (Version None)
Quarter: 2008Q2

REPORT INFORMATION
  Report Type: 
  Country: None (occurrence: None)
  Receive Date: 20080523
  Receipt Date: 20080513
  Transmission Date: 20081010
  Serious: Yes (Hospitalization)
  Sender: FDA-Public Use
  Company Number: FR-ROCHE-564516

PATIENT
  Sex: Male

DRUGS (17)
  1. ROCEPHIN [Suspect]
     Indication: INFECTION
     Route: 065
     Dates: start: 20080225, end: 20080225
  2. ASPIRIN [Concomitant]
  3. CORVASAL [Concomitant]
  4. CORVASAL [Concomitant]
  5. CORVASAL [Concomitant]
  6. LASILIX [Concomitant]
  7. 1 CONCOMITANT DRUG [Concomitant]
     Dosage: DRUG: OGASTORO
  8. 1 CONCOMITANT DRUG [Concomitant]
     Dosage: DRUG: VARTEN
  9. LORAZEPAM [Concomitant]
  10. DIFFU K [Concomitant]
  11. RENITEC [Concomitant]
  12. RENITEC [Concomitant]
  13. DOLIPRANE [Concomitant]
  14. IMOVANE [Concomitant]
  15. DUPHALAC [Concomitant]
  16. ALDACTAZIDE [Concomitant]
  17. ALDACTAZIDE [Concomitant]

REACTIONS (2)
  - LARYNGEAL OEDEMA [None]
  - RASH [None]
